FAERS Safety Report 8328979-6 (Version None)
Quarter: 2012Q2

REPORT INFORMATION
  Report Type: 
  Country: None (occurrence: None)
  Receive Date: 20120502
  Receipt Date: 20120418
  Transmission Date: 20120825
  Serious: Yes (Other)
  Sender: FDA-Public Use
  Company Number: CN-JNJFOC-20111205687

PATIENT
  Sex: Female
  Weight: 35 kg

DRUGS (2)
  1. DOXORUBICIN HCL [Suspect]
     Indication: LYMPHOMA
     Dosage: 35/ DOSE, FOR 4 TIMES IN TOTAL
     Route: 042
     Dates: start: 20111114, end: 20111114
  2. DOXORUBICIN HCL [Suspect]
     Dosage: 35/ DOSE, FOR 4 TIMES IN TOTAL
     Route: 042
     Dates: start: 20110919, end: 20110919

REACTIONS (2)
  - FUNGAL INFECTION [None]
  - LYMPHOMA [None]
